FAERS Safety Report 8234464-2 (Version None)
Quarter: 2012Q1

REPORT INFORMATION
  Report Type: 
  Country: None (occurrence: None)
  Receive Date: 20120326
  Receipt Date: 20120319
  Transmission Date: 20120608
  Serious: Yes (Death, Hospitalization)
  Sender: FDA-Public Use
  Company Number: US-ELI_LILLY_AND_COMPANY-US201201005843

PATIENT
  Sex: Female
  Weight: 70.295 kg

DRUGS (9)
  1. CARBOPLATIN [Concomitant]
     Indication: LUNG NEOPLASM MALIGNANT
     Dosage: UNK, UNKNOWN
  2. VITAMIN B-12 [Concomitant]
     Dosage: 1000 MCG, UNKNOWN
     Route: 058
     Dates: start: 20101113, end: 20110820
  3. PROCHLORPERAZINE [Concomitant]
     Dosage: UNK, UNKNOWN
  4. FOLIC ACID [Concomitant]
     Dosage: 4 MG, QD
     Route: 048
     Dates: start: 20101113, end: 20110820
  5. ONDANSETRON [Concomitant]
     Dosage: UNK, UNKNOWN
  6. DEXAMETHASONE [Concomitant]
     Dosage: 4 MG, BID
     Route: 048
     Dates: start: 20101113, end: 20110820
  7. ALIMTA [Suspect]
     Indication: LUNG NEOPLASM MALIGNANT
     Dosage: UNK, UNKNOWN
     Route: 042
     Dates: start: 20101113, end: 20110628
  8. VICODIN [Concomitant]
     Dosage: UNK, UNKNOWN
  9. AVASTIN [Concomitant]
     Indication: LUNG NEOPLASM MALIGNANT
     Dosage: UNK, UNKNOWN

REACTIONS (4)
  - PNEUMONIA CYTOMEGALOVIRAL [None]
  - MULTI-ORGAN FAILURE [None]
  - SEPSIS [None]
  - RESPIRATORY FAILURE [None]
